FAERS Safety Report 4339484-6 (Version None)
Quarter: 2004Q2

REPORT INFORMATION
  Report Type: 
  Country: None (occurrence: None)
  Receive Date: 20040415
  Receipt Date: 20040405
  Transmission Date: 20050107
  Serious: Yes (Life-Threatening, Hospitalization)
  Sender: FDA-Public Use
  Company Number: FR-BRISTOL-MYERS SQUIBB COMPANY-12559985

PATIENT
  Age: 74 Year
  Sex: Female

DRUGS (4)
  1. CYCLOPHOSPHAMIDE [Suspect]
     Indication: CHRONIC LYMPHOCYTIC LEUKAEMIA
     Route: 042
     Dates: start: 20030805, end: 20030805
  2. FLUDARA [Suspect]
     Indication: CHRONIC LYMPHOCYTIC LEUKAEMIA
     Dosage: INITIAL TREATMENT: 03-JUL2--3 TO 05-JUL-2003
     Route: 042
     Dates: start: 20030805, end: 20030807
  3. BACTRIM [Suspect]
     Route: 048
     Dates: start: 20030707, end: 20030901
  4. VALACYCLOVIR HCL [Suspect]
     Route: 048
     Dates: start: 20030702, end: 20030901

REACTIONS (2)
  - HAEMOLYTIC ANAEMIA [None]
  - THROMBOCYTOPENIA [None]
